FAERS Safety Report 7336579-X (Version None)
Quarter: 2011Q1

REPORT INFORMATION
  Report Type: 
  Country: None (occurrence: None)
  Receive Date: 20110307
  Receipt Date: 20110225
  Transmission Date: 20110831
  Serious: Yes (Hospitalization, Other)
  Sender: FDA-Public Use
  Company Number: US-MERCK-1012USA02780

PATIENT
  Age: 74 Year
  Sex: Female

DRUGS (2)
  1. FOSAMAX [Suspect]
     Indication: OSTEOPOROSIS
     Route: 048
     Dates: start: 20000101, end: 20050101
  2. FOSAMAX PLUS D [Suspect]
     Route: 048
     Dates: start: 20000101

REACTIONS (8)
  - ARTHROPATHY [None]
  - DENTAL CARIES [None]
  - FEMUR FRACTURE [None]
  - HYPOKALAEMIA [None]
  - HYPERKALAEMIA [None]
  - BONE DISORDER [None]
  - HYPERTENSION [None]
  - ANGIOPATHY [None]
